FAERS Safety Report 7182102-2 (Version None)
Quarter: 2010Q4

REPORT INFORMATION
  Report Type: 
  Country: None (occurrence: None)
  Receive Date: 20101221
  Receipt Date: 20100507
  Transmission Date: 20110411
  Serious: No
  Sender: FDA-Public Use
  Company Number: US-AMGEN-KDL411159

PATIENT

DRUGS (7)
  1. ENBREL [Suspect]
     Indication: PRODUCT USED FOR UNKNOWN INDICATION
     Dosage: 50 MG, QWK
     Route: 058
  2. METHYLPREDNISOLONE [Concomitant]
     Dosage: 4 MG, UNK
  3. ESTROGENS CONJUGATED [Concomitant]
     Dosage: .3 MG, UNK
  4. SALBUTAMOL [Concomitant]
     Dosage: .5 %, UNK
  5. LEFLUNOMIDE [Concomitant]
     Dosage: 10 MG, UNK
  6. ATENOLOL [Concomitant]
     Dosage: 25 MG, UNK
  7. OMEPRAZOLE [Concomitant]
     Dosage: 10 MG, UNK

REACTIONS (1)
  - INJECTION SITE ERYTHEMA [None]
